FAERS Safety Report 6578514-8 (Version None)
Quarter: 2010Q1

REPORT INFORMATION
  Report Type: 
  Country: None (occurrence: None)
  Receive Date: 20100211
  Receipt Date: 20100208
  Transmission Date: 20100710
  Serious: Yes (Other)
  Sender: FDA-Public Use
  Company Number: PHEH2007US11290

PATIENT
  Sex: Male
  Weight: 77.098 kg

DRUGS (9)
  1. AREDIA [Suspect]
     Indication: MULTIPLE MYELOMA
  2. ZOMETA [Suspect]
  3. MELPHALAN HYDROCHLORIDE [Concomitant]
  4. VINCRISTINE + ADRIAMYCIN + DEXAMETHASONE [Concomitant]
  5. PENICILLIN ^GRUNENTHAL^ [Concomitant]
  6. ACYCLOVIR [Concomitant]
     Dosage: 400 MG, BID
  7. PERIDEX [Concomitant]
  8. CIPROFLOXACIN [Concomitant]
  9. CLINDAMYCIN [Concomitant]
     Dosage: 210 MG, UNK

REACTIONS (14)
  - ANHEDONIA [None]
  - ANXIETY [None]
  - DEFORMITY [None]
  - DISCOMFORT [None]
  - EMOTIONAL DISTRESS [None]
  - EYELID DISORDER [None]
  - HYPOPHAGIA [None]
  - LIFE EXPECTANCY SHORTENED [None]
  - MOUTH ULCERATION [None]
  - OSTEONECROSIS [None]
  - OSTEOPENIA [None]
  - PAIN [None]
  - SINUSITIS [None]
  - TOOTH EXTRACTION [None]
